FAERS Safety Report 10880558 (Version 3)
Quarter: 2015Q2

REPORT INFORMATION
  Report Type: Spontaneous
  Country: IT (occurrence: IT)
  Receive Date: 20150303
  Receipt Date: 20150518
  Transmission Date: 20150821
  Serious: Yes (Hospitalization)
  Sender: FDA-Public Use
  Company Number: IT-ROCHE-1544758

PATIENT
  Age: 56 Year
  Sex: Male

DRUGS (6)
  1. ZOFRAN [Concomitant]
     Active Substance: ONDANSETRON HYDROCHLORIDE
     Dosage: 4 MG/2 ML 1 X 2 ML AMPOULE
     Route: 065
  2. LEVACT (ITALY) [Suspect]
     Active Substance: BENDAMUSTINE HYDROCHLORIDE
     Indication: HODGKIN^S DISEASE
     Dosage: 2.5 MG/ML 5 X 100 MG GLASS VIALS
     Route: 041
     Dates: start: 20150118, end: 20150118
  3. ESOMEPRAZOLE SODIUM. [Concomitant]
     Active Substance: ESOMEPRAZOLE SODIUM
     Route: 065
  4. DELTACORTENE [Concomitant]
     Active Substance: PREDNISONE
     Dosage: ^5 MG TABLETS ^10 TABLETS
     Route: 048
  5. MABTHERA [Suspect]
     Active Substance: RITUXIMAB
     Indication: HODGKIN^S DISEASE
     Dosage: 1 AMPOULE 500 MG 50 ML
     Route: 041
     Dates: start: 20150120, end: 20150120
  6. ALLOPURINOL. [Concomitant]
     Active Substance: ALLOPURINOL
     Route: 065

REACTIONS (3)
  - Ejection fraction decreased [Recovering/Resolving]
  - Condition aggravated [Recovering/Resolving]
  - Cardiac failure [Recovering/Resolving]

NARRATIVE: CASE EVENT DATE: 20150216
